FAERS Safety Report 8259878-6 (Version None)
Quarter: 2012Q2

REPORT INFORMATION
  Report Type: 
  Country: None (occurrence: None)
  Receive Date: 20120404
  Receipt Date: 20120327
  Transmission Date: 20120825
  Serious: Yes (Death, Life-Threatening, Hospitalization)
  Sender: FDA-Public Use
  Company Number: FR-GLAXOSMITHKLINE-B0772146A

PATIENT
  Sex: Male

DRUGS (13)
  1. TRAMADOL HCL [Suspect]
     Indication: PRODUCT USED FOR UNKNOWN INDICATION
     Dosage: 50MG THREE TIMES PER DAY
     Route: 048
     Dates: end: 20111122
  2. ACETAMINOPHEN [Concomitant]
     Route: 048
  3. VALSARTAN  AND HYDROCHLOROTHIAZIDE [Suspect]
     Indication: PRODUCT USED FOR UNKNOWN INDICATION
     Route: 048
     Dates: end: 20111122
  4. GLUCOPHAGE [Suspect]
     Indication: PRODUCT USED FOR UNKNOWN INDICATION
     Dosage: 500MG TWICE PER DAY
     Route: 048
     Dates: end: 20111122
  5. AMLODIPINE BESYLATE [Concomitant]
     Dosage: 10MG PER DAY
     Route: 065
  6. FLUARIX 2011-12 SEASON [Suspect]
     Indication: PROPHYLAXIS
     Route: 030
     Dates: start: 20111104, end: 20111104
  7. NEXEN [Suspect]
     Indication: PRODUCT USED FOR UNKNOWN INDICATION
     Dosage: 100MG TWICE PER DAY
     Route: 048
     Dates: end: 20111122
  8. HEXAQUINE [Suspect]
     Indication: PRODUCT USED FOR UNKNOWN INDICATION
     Dosage: 3TAB PER DAY
     Route: 048
     Dates: start: 19980101, end: 20111122
  9. MEDIATENSYL [Suspect]
     Indication: PRODUCT USED FOR UNKNOWN INDICATION
     Dosage: 60MG TWICE PER DAY
     Route: 048
     Dates: end: 20111122
  10. ZOLPIDEM [Concomitant]
     Dosage: 10MG PER DAY
     Route: 065
  11. AVODART [Suspect]
     Indication: PRODUCT USED FOR UNKNOWN INDICATION
     Dosage: .5MG PER DAY
     Route: 048
     Dates: end: 20111122
  12. BEFIZAL [Suspect]
     Indication: PRODUCT USED FOR UNKNOWN INDICATION
     Dosage: 400MG PER DAY
     Route: 048
     Dates: end: 20111122
  13. CARVEDILOL [Concomitant]
     Dosage: 12.5MG TWICE PER DAY
     Route: 065

REACTIONS (1)
  - ANAEMIA HAEMOLYTIC AUTOIMMUNE [None]
